FAERS Safety Report 5053701-9 (Version None)
Quarter: 2006Q3

REPORT INFORMATION
  Report Type: 
  Country: None (occurrence: None)
  Receive Date: 20060718
  Receipt Date: 20060706
  Transmission Date: 20061208
  Serious: Yes (Hospitalization)
  Sender: FDA-Public Use
  Company Number: DE-ROCHE-454526

PATIENT
  Age: 78 Year
  Weight: 70 kg

DRUGS (9)
  1. CAPECITABINE [Suspect]
     Indication: DRUG USE FOR UNKNOWN INDICATION
     Route: 065
     Dates: start: 20051026, end: 20060221
  2. OXALIPLATIN [Concomitant]
     Dates: start: 20051026, end: 20051102
  3. BISOPROLOL FUMARATE [Concomitant]
  4. SPIRONOLACTONE [Concomitant]
  5. ISCOVER [Concomitant]
  6. 1 CONCOMITANT DRUG [Concomitant]
     Dosage: DRUG REPORTED AS AMISULPRID.
  7. VENLAFAXINE HCL [Concomitant]
  8. MIRTAZAPINE [Concomitant]
     Dosage: DRUG REPORTED AS MIRTAZEPIN.
  9. AQUAPHOR [Concomitant]

REACTIONS (4)
  - BRAIN OEDEMA [None]
  - FALL [None]
  - HEAD INJURY [None]
  - METASTASES TO CENTRAL NERVOUS SYSTEM [None]
